FAERS Safety Report 24950079 (Version 3)
Quarter: 2025Q1

REPORT INFORMATION
  Report Type: Spontaneous
  Country: BR (occurrence: BR)
  Receive Date: 20250210
  Receipt Date: 20250318
  Transmission Date: 20250409
  Serious: Yes (Hospitalization)
  Sender: ORGANON
  Company Number: BR-ORGANON-O2501BRA003238

PATIENT
  Age: 23 Year
  Sex: Female
  Weight: 63.9 kg

DRUGS (3)
  1. ETONOGESTREL [Suspect]
     Active Substance: ETONOGESTREL
     Indication: Contraception
     Route: 058
     Dates: start: 20250124, end: 20250127
  2. DROSPIRENONE [Concomitant]
     Active Substance: DROSPIRENONE
     Dosage: UNK UNK, QM
  3. VITAMIN D NOS [Concomitant]
     Active Substance: CHOLECALCIFEROL\ERGOCALCIFEROL
     Dosage: UNK, QM

REACTIONS (4)
  - Pain in extremity [Not Recovered/Not Resolved]
  - Mobility decreased [Not Recovered/Not Resolved]
  - Implant site bruising [Not Recovered/Not Resolved]
  - Implant site oedema [Not Recovered/Not Resolved]

NARRATIVE: CASE EVENT DATE: 20250101
